FAERS Safety Report 6893273-7 (Version None)
Quarter: 2010Q3

REPORT INFORMATION
  Report Type: 
  Country: None (occurrence: None)
  Receive Date: 20100731
  Receipt Date: 20090728
  Transmission Date: 20110219
  Serious: No
  Sender: FDA-Public Use
  Company Number: US-PFIZER INC-2009214726

PATIENT
  Sex: Female
  Weight: 65.8 kg

DRUGS (12)
  1. GABAPENTIN [Suspect]
     Indication: NEUROPATHY PERIPHERAL
     Dosage: 1800 MG/DAY
     Dates: start: 20090501
  2. ARICEPT [Suspect]
     Indication: MEMORY IMPAIRMENT
     Dosage: 10 MG, 1X/DAY
  3. AMITRIPTYLINE [Concomitant]
     Dosage: UNK
  4. ATENOLOL [Concomitant]
     Dosage: UNK
     Route: 048
  5. ESTRADIOL [Concomitant]
     Dosage: UNK
  6. RANITIDINE [Concomitant]
     Dosage: UNK
  7. SIMVASTATIN [Concomitant]
     Dosage: UNK
     Route: 048
  8. TOPAMAX [Concomitant]
     Dosage: UNK
     Route: 048
  9. ALENDRONATE SODIUM [Concomitant]
     Dosage: UNK
  10. SERTRALINE [Concomitant]
     Dosage: UNK
  11. TRAMADOL [Concomitant]
     Dosage: UNK
  12. ACETAMINOPHEN [Concomitant]
     Dosage: UNK

REACTIONS (2)
  - MEMORY IMPAIRMENT [None]
  - PAIN [None]
